FAERS Safety Report 6215496-2 (Version None)
Quarter: 2009Q2

REPORT INFORMATION
  Report Type: 
  Country: None (occurrence: None)
  Receive Date: 20090603
  Receipt Date: 20090518
  Transmission Date: 20091009
  Serious: Yes (Other)
  Sender: FDA-Public Use
  Company Number: 8046707

PATIENT
  Age: 76 Year
  Sex: Female

DRUGS (3)
  1. LEVETIRACETAM [Suspect]
     Dosage: 1 G /D IV
     Route: 042
     Dates: start: 20061226
  2. LEVETIRACETAM [Suspect]
     Dosage: 0.5 G /D PO
     Route: 048
     Dates: start: 20070103, end: 20070104
  3. CLONAZEPAM [Concomitant]

REACTIONS (1)
  - PANCYTOPENIA [None]
